FAERS Safety Report 18586028 (Version 1)
Quarter: 2020Q4

REPORT INFORMATION
  Report Type: Spontaneous
  Country: US (occurrence: US)
  Receive Date: 20201207
  Receipt Date: 20201207
  Transmission Date: 20210114
  Serious: No
  Sender: FDA-Public Use
  Company Number: US-ELI_LILLY_AND_COMPANY-US202012001444

PATIENT
  Age: 65 Year
  Sex: Female

DRUGS (1)
  1. HUMALOG JUNIOR KWIKPEN [Suspect]
     Active Substance: INSULIN LISPRO
     Indication: DIABETES MELLITUS
     Dosage: 6 U, BID (4-6 UNITS TWICE WITH CORRECTION)
     Route: 058
     Dates: start: 202009

REACTIONS (1)
  - Wrong patient received product [Not Recovered/Not Resolved]

NARRATIVE: CASE EVENT DATE: 202009
